FAERS Safety Report 9627802 (Version 1)
Quarter: 2013Q4

REPORT INFORMATION
  Report Type: Spontaneous
  Country: US (occurrence: US)
  Receive Date: 20131016
  Receipt Date: 20131016
  Transmission Date: 20140711
  Serious: No
  Sender: FDA-Public Use
  Company Number: US-TEVA-438201USA

PATIENT
  Sex: Female
  Weight: 53.57 kg

DRUGS (3)
  1. PROAIR HFA [Suspect]
     Indication: COUGH
     Dates: start: 201309
  2. ADVAIR [Concomitant]
     Indication: COUGH
     Dates: end: 201309
  3. SYMBICORT [Concomitant]
     Indication: COUGH

REACTIONS (1)
  - Off label use [Unknown]
